FAERS Safety Report 7884937-7 (Version None)
Quarter: 2011Q4

REPORT INFORMATION
  Report Type: 
  Country: None (occurrence: None)
  Receive Date: 20111102
  Receipt Date: 20110921
  Transmission Date: 20120403
  Serious: Yes (Other)
  Sender: FDA-Public Use
  Company Number: PHFR2003GB01466

PATIENT
  Sex: Male

DRUGS (7)
  1. CLOZARIL [Suspect]
     Dosage: 650 MG
     Route: 048
     Dates: start: 19950101
  2. LACTULOSE [Concomitant]
     Dosage: 30 ML/DAY
     Route: 048
  3. LANSOPRAZOLE [Concomitant]
     Dosage: 30 MG/DAY
     Route: 048
  4. CLOZARIL [Suspect]
     Indication: SCHIZOPHRENIA
     Dosage: 650 MG
     Route: 048
     Dates: start: 19901119, end: 19910101
  5. CLOZARIL [Suspect]
     Dosage: 675 MG/DAY
     Route: 048
  6. ENALAPRIL [Concomitant]
     Dosage: 5 MG/DAY
     Route: 048
  7. FUROSEMIDE [Concomitant]
     Dosage: 80 MG/DAY
     Route: 048

REACTIONS (5)
  - LYMPHOCYTOSIS [None]
  - WHITE BLOOD CELL COUNT INCREASED [None]
  - EOSINOPHIL COUNT DECREASED [None]
  - CHRONIC LYMPHOCYTIC LEUKAEMIA [None]
  - INFECTION [None]
